FAERS Safety Report 4516220-1 (Version None)
Quarter: 2004Q4

REPORT INFORMATION
  Report Type: 
  Country: None (occurrence: None)
  Receive Date: 20041129
  Receipt Date: 20041101
  Transmission Date: 20050328
  Serious: Yes (Death, Hospitalization)
  Sender: FDA-Public Use
  Company Number: 2004EN000078

PATIENT
  Age: 30 Year
  Sex: Female

DRUGS (4)
  1. ABELCET [Suspect]
     Indication: CEREBRAL FUNGAL INFECTION
     Dosage: SEE IMAGE
     Route: 042
  2. METHOTREXATE [Concomitant]
  3. TACROLIMUS [Concomitant]
  4. MYCOPHENOLATE MOFETIL [Concomitant]

REACTIONS (21)
  - BRAIN ABSCESS [None]
  - BRAIN HERNIATION [None]
  - BRAIN MASS [None]
  - BRAIN OEDEMA [None]
  - CEREBRAL FUNGAL INFECTION [None]
  - CHROMOBLASTOMYCOSIS [None]
  - DRUG INEFFECTIVE [None]
  - EJECTION FRACTION DECREASED [None]
  - HEART TRANSPLANT REJECTION [None]
  - HYPOTENSION [None]
  - HYPOVOLAEMIA [None]
  - NAUSEA [None]
  - NERVOUS SYSTEM DISORDER [None]
  - NUCLEAR MAGNETIC RESONANCE IMAGING ABNORMAL [None]
  - RENAL FAILURE [None]
  - RESPIRATORY FAILURE [None]
  - RESPIRATORY TRACT INFECTION FUNGAL [None]
  - SUBDURAL HAEMATOMA [None]
  - TONSILLAR DISORDER [None]
  - VENTRICULAR DYSFUNCTION [None]
  - VOMITING [None]
